FAERS Safety Report 6237631-2 (Version None)
Quarter: 2009Q2

REPORT INFORMATION
  Report Type: 
  Country: None (occurrence: None)
  Receive Date: 20090619
  Receipt Date: 20090611
  Transmission Date: 20091009
  Serious: Yes (Other)
  Sender: FDA-Public Use
  Company Number: US-AMGEN-QUU349140

PATIENT
  Sex: Female
  Weight: 69.2 kg

DRUGS (9)
  1. ENBREL [Suspect]
     Indication: JUVENILE ARTHRITIS
     Route: 058
     Dates: start: 20090401
  2. METHOTREXATE [Suspect]
     Dates: start: 20081215
  3. NAPROXEN [Suspect]
     Dates: start: 20090116
  4. PREDNISONE [Suspect]
     Dates: start: 20090306
  5. FOLIC ACID [Concomitant]
     Dates: start: 20081215
  6. OMEPRAZOLE [Concomitant]
     Dates: start: 20090306
  7. ASCORBIC ACID [Concomitant]
     Dates: start: 20081215
  8. MULTI-VITAMINS [Concomitant]
     Dates: start: 20081215
  9. CALCIUM [Concomitant]
     Dates: start: 20081213

REACTIONS (5)
  - AMENORRHOEA [None]
  - FATIGUE [None]
  - INJECTION SITE IRRITATION [None]
  - IRON DEFICIENCY ANAEMIA [None]
  - NAUSEA [None]
